FAERS Safety Report 11664272 (Version 1)
Quarter: 2015Q4

REPORT INFORMATION
  Report Type: Spontaneous
  Country: US (occurrence: None)
  Receive Date: 20151026
  Receipt Date: 20151026
  Transmission Date: 20160304
  Serious: No
  Sender: FDA-Public Use
  Company Number: None

PATIENT
  Age: 34 Year
  Sex: Female
  Weight: 54 kg

DRUGS (1)
  1. MIRENA [Suspect]
     Active Substance: LEVONORGESTREL
     Dates: start: 20151009

REACTIONS (11)
  - Headache [None]
  - Anorgasmia [None]
  - Crying [None]
  - Social phobia [None]
  - Muscle spasms [None]
  - Depression [None]
  - Insomnia [None]
  - Feelings of worthlessness [None]
  - Irritability [None]
  - Suicidal ideation [None]
  - Loss of libido [None]

NARRATIVE: CASE EVENT DATE: 20151009
